FAERS Safety Report 21318145 (Version 2)
Quarter: 2022Q4

REPORT INFORMATION
  Report Type: Spontaneous
  Country: US (occurrence: US)
  Receive Date: 20220911
  Receipt Date: 20221103
  Transmission Date: 20230112
  Serious: No
  Sender: FDA-Public Use
  Company Number: US-SA-SAC20220825001833

PATIENT
  Age: 56 Year
  Sex: Male

DRUGS (2)
  1. DUPIXENT [Suspect]
     Active Substance: DUPILUMAB
     Indication: Nasal polyps
     Dosage: 300 MG, QOW
     Route: 058
     Dates: start: 20220525
  2. PULMICORT TURBUHALER [Concomitant]
     Active Substance: BUDESONIDE
     Indication: Hypersensitivity
     Dosage: 1MG/2ML TWICE DAILY, ROUTE: NEBULIZAR
     Route: 045
     Dates: start: 20170413, end: 20211223

REACTIONS (3)
  - Visual impairment [Recovering/Resolving]
  - Taste disorder [Recovering/Resolving]
  - Insomnia [Unknown]

NARRATIVE: CASE EVENT DATE: 20220615
